FAERS Safety Report 24970621 (Version 3)
Quarter: 2025Q2

REPORT INFORMATION
  Report Type: Spontaneous
  Country: PL (occurrence: PL)
  Receive Date: 20250214
  Receipt Date: 20250606
  Transmission Date: 20250717
  Serious: Yes (Other)
  Sender: PFIZER
  Company Number: PL-PFM-2025-00687

PATIENT
  Age: 65 Year
  Sex: Female

DRUGS (10)
  1. ENCORAFENIB [Suspect]
     Active Substance: ENCORAFENIB
     Indication: BRAF gene mutation
     Dosage: 450 MG, 1X/DAY (QD)
     Route: 065
  2. ENCORAFENIB [Suspect]
     Active Substance: ENCORAFENIB
     Indication: Metastatic malignant melanoma
     Dosage: 300 MG, 1X/DAY (QD)
     Route: 065
  3. ENCORAFENIB [Suspect]
     Active Substance: ENCORAFENIB
     Indication: Malignant melanoma
  4. BINIMETINIB [Suspect]
     Active Substance: BINIMETINIB
     Indication: BRAF gene mutation
     Dosage: 45 MG, 2X/DAY (BID)
     Route: 065
  5. BINIMETINIB [Suspect]
     Active Substance: BINIMETINIB
     Indication: Metastatic malignant melanoma
     Dosage: 30 MG, 2X/DAY (BID)
     Route: 065
  6. BINIMETINIB [Suspect]
     Active Substance: BINIMETINIB
     Indication: Malignant melanoma
  7. HYDROXYCHLOROQUINE [Suspect]
     Active Substance: HYDROXYCHLOROQUINE
     Indication: Rheumatoid arthritis
     Route: 048
  8. HYDROXYCHLOROQUINE [Suspect]
     Active Substance: HYDROXYCHLOROQUINE
     Indication: Systemic lupus erythematosus
  9. METHYLPREDNISOLONE [Concomitant]
     Active Substance: METHYLPREDNISOLONE
     Indication: Rheumatoid arthritis
  10. METHYLPREDNISOLONE [Concomitant]
     Active Substance: METHYLPREDNISOLONE
     Indication: Systemic lupus erythematosus

REACTIONS (5)
  - Systemic lupus erythematosus [Recovering/Resolving]
  - Visual field defect [Recovered/Resolved]
  - Paraesthesia [Recovering/Resolving]
  - Sensory disturbance [Recovering/Resolving]
  - Muscular weakness [Recovering/Resolving]
